FAERS Safety Report 6856376 (Version 2)
Quarter: 2013Q1

REPORT INFORMATION
  Report Type: Spontaneous
  Country: US (occurrence: US)
  Receive Date: 20081217
  Receipt Date: 20130219
  Transmission Date: 20140127
  Serious: No
  Sender: FDA-Public Use
  Company Number: US-ASTRAZENECA-2007UW28912

PATIENT
  Age: 48 Year
  Sex: 0
  Weight: 90.7 kg

DRUGS (3)
  1. CRESTOR [Suspect]
     Indication: LIPIDS INCREASED
     Route: 048
     Dates: start: 20070110, end: 20071205
  2. TRICOR [Concomitant]
     Indication: BLOOD TRIGLYCERIDES INCREASED
     Route: 048
     Dates: start: 20070630
  3. OMACOR [Concomitant]
     Route: 048
     Dates: start: 20070110

REACTIONS (3)
  - Neuropathy peripheral [Unknown]
  - Nephropathy [Not Recovered/Not Resolved]
  - Hypergammaglobulinaemia benign monoclonal [Unknown]
